FAERS Safety Report 8841629 (Version 1)
Quarter: 2012Q4

REPORT INFORMATION
  Report Type: 
  Country: JP (occurrence: JP)
  Receive Date: 20121015
  Receipt Date: 20121015
  Transmission Date: 20130627
  Serious: Yes (Hospitalization, Other)
  Sender: FDA-Public Use
  Company Number: JP-ASTRAZENECA-2011SE50362

PATIENT
  Age: 46 Year
  Sex: Female
  Weight: 62 kg

DRUGS (80)
  1. SYMBICORT [Suspect]
     Indication: ASTHMA
     Dosage: 320/9 UG ONE INHALATION TWO TIMES A DAY
     Route: 055
     Dates: start: 20100415, end: 20100426
  2. SYMBICORT [Suspect]
     Indication: ASTHMA
     Dosage: 320/9 UG TWO INHALATION TWO TIMES A DAY
     Route: 055
     Dates: start: 20100427, end: 20100524
  3. SYMBICORT [Suspect]
     Indication: ASTHMA
     Dosage: 320/9 UG FOUR INHALATION TWO TIMES A DAY
     Route: 055
     Dates: start: 20100525
  4. SULTANOL [Suspect]
     Indication: ASTHMA
     Route: 055
  5. PREDONINE [Suspect]
     Indication: ASTHMA
     Route: 048
     Dates: end: 20100510
  6. PREDONINE [Suspect]
     Indication: ASTHMA
     Dosage: Number of separate dosages unknown
     Route: 048
     Dates: start: 20101019, end: 20101027
  7. PREDONINE [Suspect]
     Indication: ASTHMA
     Dosage: Number of separate dosages unknown
     Route: 048
     Dates: start: 20101028, end: 20101030
  8. PREDONINE [Suspect]
     Indication: ASTHMA
     Route: 048
     Dates: start: 20101031
  9. PREDONINE [Suspect]
     Indication: ASTHMA
     Dosage: Number of separate dosages unknown
     Route: 048
     Dates: start: 20110209, end: 20110212
  10. PREDONINE [Suspect]
     Indication: ASTHMA
     Dosage: Number of separate dosages unknown
     Route: 048
     Dates: start: 20110308
  11. PREDONINE [Suspect]
     Indication: ASTHMA
     Dosage: Number of separate dosages unknown
     Route: 048
     Dates: start: 20110323, end: 20110326
  12. PREDONINE [Suspect]
     Indication: ASTHMA
     Dosage: Number of separate dosages unknown
     Route: 048
     Dates: start: 20110410, end: 20110413
  13. GASRICK D [Concomitant]
     Indication: GASTRITIS
     Route: 048
  14. SOLANTAL [Concomitant]
     Indication: INTERVERTEBRAL DISC PROTRUSION
     Route: 048
  15. MOBIC [Concomitant]
     Indication: INTERVERTEBRAL DISC PROTRUSION
     Route: 048
  16. TAVEGYL [Concomitant]
     Indication: URTICARIA
     Route: 048
  17. KIPRES [Concomitant]
     Indication: ASTHMA
     Route: 048
  18. SENNOSIDE [Concomitant]
     Indication: CONSTIPATION
     Route: 048
  19. HIBON [Concomitant]
     Indication: STOMATITIS
     Route: 048
  20. FUROSEMIDE [Concomitant]
     Indication: OEDEMA
     Route: 048
  21. NEUER [Concomitant]
     Indication: GASTRITIS
     Route: 048
  22. BAKUMONDO-TO [Concomitant]
     Indication: ASTHMA
     Route: 048
  23. BISOLVON [Concomitant]
     Indication: ASTHMA
     Route: 048
  24. UNICON [Concomitant]
     Indication: ASTHMA
     Route: 048
  25. PULMICORT [Concomitant]
     Indication: ASTHMA
     Route: 055
  26. SEREVENT [Concomitant]
     Indication: ASTHMA
     Route: 055
     Dates: end: 20100526
  27. GENINAX [Concomitant]
     Indication: BRONCHITIS
     Route: 048
     Dates: start: 20100427, end: 20100504
  28. GENINAX [Concomitant]
     Indication: BRONCHITIS
     Route: 048
     Dates: start: 20101021, end: 20101025
  29. GENINAX [Concomitant]
     Indication: BRONCHITIS
     Route: 048
     Dates: start: 20110208, end: 20110213
  30. GENINAX [Concomitant]
     Indication: BRONCHITIS
     Route: 048
     Dates: start: 20110308, end: 20110314
  31. GENINAX [Concomitant]
     Indication: BRONCHITIS
     Route: 048
     Dates: start: 20110322, end: 20110328
  32. GENINAX [Concomitant]
     Indication: BRONCHITIS
     Route: 048
     Dates: start: 20110405, end: 20110411
  33. CALONAL [Concomitant]
     Indication: BRONCHITIS
     Route: 048
     Dates: start: 20100427, end: 20100504
  34. PREDNISOLONE [Concomitant]
     Indication: ASTHMA
     Dosage: Number of separate dosages unknown
     Route: 048
     Dates: start: 20100511
  35. INTAL [Concomitant]
     Indication: CONJUNCTIVITIS ALLERGIC
     Dosage: Dose unknown
     Route: 047
     Dates: start: 20100831
  36. KOLANTYL [Concomitant]
     Indication: GASTRITIS
     Route: 048
  37. SOLDEM 3 [Concomitant]
     Indication: ASTHMA
     Route: 041
     Dates: start: 20101007, end: 20101007
  38. SOLDEM 3 [Concomitant]
     Indication: ASTHMA
     Route: 041
     Dates: start: 20101112, end: 20101112
  39. SOLDEM 3 [Concomitant]
     Indication: ASTHMA
     Route: 041
     Dates: start: 20110208, end: 20110208
  40. SOLDEM 3 [Concomitant]
     Indication: ASTHMA
     Route: 041
     Dates: start: 20110223, end: 20110223
  41. SOLDEM 3 [Concomitant]
     Indication: ASTHMA
     Route: 041
     Dates: start: 20110304, end: 20110304
  42. SOLDEM 3 [Concomitant]
     Indication: ASTHMA
     Route: 041
     Dates: start: 20110313, end: 20110313
  43. SOLDEM 3 [Concomitant]
     Indication: ASTHMA
     Route: 041
     Dates: start: 20110322, end: 20110322
  44. SOLDEM 3 [Concomitant]
     Indication: ASTHMA
     Route: 041
     Dates: start: 20110325, end: 20110326
  45. SOLDEM 3 [Concomitant]
     Indication: ASTHMA
     Route: 041
     Dates: start: 20110409, end: 20110409
  46. SOLDEM 3 [Concomitant]
     Indication: ASTHMA
     Route: 041
     Dates: start: 20110415, end: 20110415
  47. NEOPHYLLIN INJECTION [Concomitant]
     Indication: ASTHMA
     Route: 041
     Dates: start: 20101007, end: 20101007
  48. NEOPHYLLIN INJECTION [Concomitant]
     Indication: ASTHMA
     Route: 041
     Dates: start: 20101008, end: 20101021
  49. NEOPHYLLIN INJECTION [Concomitant]
     Indication: ASTHMA
     Route: 041
     Dates: start: 20101112, end: 20101112
  50. NEOPHYLLIN INJECTION [Concomitant]
     Indication: ASTHMA
     Route: 041
     Dates: start: 20110208, end: 20110208
  51. NEOPHYLLIN INJECTION [Concomitant]
     Indication: ASTHMA
     Route: 041
     Dates: start: 20110223, end: 20110223
  52. NEOPHYLLIN INJECTION [Concomitant]
     Indication: ASTHMA
     Route: 041
     Dates: start: 20110304, end: 20110304
  53. NEOPHYLLIN INJECTION [Concomitant]
     Indication: ASTHMA
     Route: 041
     Dates: start: 20110313, end: 20110313
  54. NEOPHYLLIN INJECTION [Concomitant]
     Indication: ASTHMA
     Route: 041
     Dates: start: 20110322, end: 20110322
  55. NEOPHYLLIN INJECTION [Concomitant]
     Indication: ASTHMA
     Route: 041
     Dates: start: 20110325, end: 20110326
  56. NEOPHYLLIN INJECTION [Concomitant]
     Indication: ASTHMA
     Route: 041
     Dates: start: 20110409, end: 20110409
  57. NEOPHYLLIN INJECTION [Concomitant]
     Indication: ASTHMA
     Route: 041
     Dates: start: 20110415, end: 20110415
  58. SAXIZON [Concomitant]
     Indication: ASTHMA
     Route: 065
     Dates: start: 20101007, end: 20101007
  59. SOL-MELCORT [Concomitant]
     Indication: ASTHMA
     Route: 041
     Dates: start: 20101008, end: 20101008
  60. SOL-MELCORT [Concomitant]
     Indication: ASTHMA
     Route: 041
     Dates: start: 20101009, end: 20101018
  61. SOL-MELCORT [Concomitant]
     Indication: ASTHMA
     Route: 041
     Dates: start: 20101019, end: 20101021
  62. SOL-MELCORT [Concomitant]
     Indication: ASTHMA
     Route: 041
     Dates: start: 20101112, end: 20101112
  63. SOL-MELCORT [Concomitant]
     Indication: ASTHMA
     Route: 041
     Dates: start: 20110208, end: 20110208
  64. SOL-MELCORT [Concomitant]
     Indication: ASTHMA
     Route: 041
     Dates: start: 20110223, end: 20110223
  65. SOL-MELCORT [Concomitant]
     Indication: ASTHMA
     Route: 041
     Dates: start: 20110304, end: 20110304
  66. SOL-MELCORT [Concomitant]
     Indication: ASTHMA
     Route: 041
     Dates: start: 20110313, end: 20110313
  67. SOL-MELCORT [Concomitant]
     Indication: ASTHMA
     Route: 041
     Dates: start: 20110322, end: 20110322
  68. SOL-MELCORT [Concomitant]
     Indication: ASTHMA
     Route: 041
     Dates: start: 20110325, end: 20110326
  69. SOL-MELCORT [Concomitant]
     Indication: ASTHMA
     Route: 041
     Dates: start: 20110409, end: 20110409
  70. U-PAN [Concomitant]
     Indication: ANXIETY DISORDER
     Route: 048
     Dates: start: 20101029
  71. TETRAMIDE [Concomitant]
     Indication: DEPRESSION
     Route: 048
     Dates: start: 20101112, end: 20110218
  72. JZOLOFT [Concomitant]
     Indication: DEPRESSION
     Route: 048
     Dates: start: 20101112
  73. PL [Concomitant]
     Indication: UPPER RESPIRATORY TRACT INFLAMMATION
     Route: 048
     Dates: start: 20101113, end: 20101122
  74. PL [Concomitant]
     Indication: BRONCHITIS
     Route: 048
     Dates: start: 20101113, end: 20101122
  75. PL [Concomitant]
     Indication: UPPER RESPIRATORY TRACT INFLAMMATION
     Route: 048
     Dates: start: 20110208, end: 20110213
  76. PL [Concomitant]
     Indication: BRONCHITIS
     Route: 048
     Dates: start: 20110208, end: 20110213
  77. PRIMPERAN [Concomitant]
     Indication: GASTROINTESTINAL DISORDER
     Route: 048
     Dates: start: 20101113, end: 20101122
  78. RIKKUNSHI-TO [Concomitant]
     Indication: GASTROINTESTINAL DISORDER
     Route: 048
     Dates: start: 20101124, end: 20101129
  79. SOLDEM 3AG [Concomitant]
     Indication: DEHYDRATION
     Route: 041
     Dates: start: 20101124, end: 20101124
  80. LIVOSTIN [Concomitant]
     Indication: RHINITIS ALLERGIC
     Route: 045
     Dates: start: 20110228

REACTIONS (4)
  - Dehydration [Unknown]
  - Upper respiratory tract inflammation [Unknown]
  - Asthma [Recovering/Resolving]
  - Blood potassium decreased [Unknown]
